FAERS Safety Report 6131454-0 (Version None)
Quarter: 2009Q1

REPORT INFORMATION
  Report Type: 
  Country: None (occurrence: None)
  Receive Date: 20090325
  Receipt Date: 20080717
  Transmission Date: 20090719
  Serious: No
  Sender: FDA-Public Use
  Company Number: US-BRISTOL-MYERS SQUIBB COMPANY-14267892

PATIENT

DRUGS (4)
  1. ERBITUX [Suspect]
     Dosage: ON 17-JUL-2008, ERBITUX WAS RECHALLANGED.
     Dates: start: 20080716
  2. BENADRYL [Concomitant]
     Indication: PREMEDICATION
     Dosage: AS PREMEDICATION ON 16-JUL-2008 (NIGHT) AND ON 17-JUL-2008
     Dates: start: 20080716
  3. PEPCID [Concomitant]
     Indication: PREMEDICATION
     Dosage: AND AS PREMEDICATION ON 17-JUL-2008
     Dates: start: 20080716
  4. STEROIDS [Concomitant]
     Indication: PREMEDICATION
     Dates: start: 20080717

REACTIONS (3)
  - DYSPNOEA [None]
  - HYPOTENSION [None]
  - PRURITUS [None]
